FAERS Safety Report 20316578 (Version 1)
Quarter: 2022Q1

REPORT INFORMATION
  Report Type: Spontaneous
  Country: US (occurrence: None)
  Receive Date: 20220108
  Receipt Date: 20220108
  Transmission Date: 20220424
  Serious: Yes (Hospitalization)
  Sender: FDA-Public Use
  Company Number: None

PATIENT
  Age: 16 Year
  Sex: Male
  Weight: 45.5 kg

DRUGS (6)
  1. ONCASPAR [Suspect]
     Active Substance: PEGASPARGASE
     Dates: end: 20211028
  2. DEXAMETHASONE [Suspect]
     Active Substance: DEXAMETHASONE
     Dates: end: 20211109
  3. DOXORUBICIN HYDROCHLORIDE [Suspect]
     Active Substance: DOXORUBICIN HYDROCHLORIDE
     Dates: end: 20211108
  4. VINCRISTINE SULFATE [Suspect]
     Active Substance: VINCRISTINE SULFATE
     Dates: end: 20211108
  5. LEUCOVORIN CALCIUM [Suspect]
     Active Substance: LEUCOVORIN CALCIUM
     Dates: end: 20211029
  6. METHOTREXATE [Suspect]
     Active Substance: METHOTREXATE
     Dates: end: 20211025

REACTIONS (17)
  - Pancreatitis [None]
  - Feeding disorder [None]
  - Mucosal inflammation [None]
  - Pharyngeal lesion [None]
  - Hypophagia [None]
  - Blood bilirubin increased [None]
  - Aspartate aminotransferase increased [None]
  - Alanine aminotransferase increased [None]
  - Skin lesion [None]
  - Blood glucose increased [None]
  - Pancreatic pseudocyst [None]
  - Gastrointestinal wall thickening [None]
  - Gastrointestinal oedema [None]
  - Ascites [None]
  - Pulmonary fibrosis [None]
  - Atelectasis [None]
  - Pleural effusion [None]

NARRATIVE: CASE EVENT DATE: 20211110
